FAERS Safety Report 26131128 (Version 1)
Quarter: 2025Q4

REPORT INFORMATION
  Report Type: Spontaneous
  Country: US (occurrence: US)
  Receive Date: 20251208
  Receipt Date: 20251208
  Transmission Date: 20260117
  Serious: No
  Sender: SANOFI AVENTIS
  Company Number: US-SA-2025SA363482

PATIENT
  Sex: Male

DRUGS (1)
  1. ALTUVIIIO [Suspect]
     Active Substance: EFANESOCTOCOG ALFA
     Indication: Factor VIII deficiency
     Dosage: UNK, QW
     Route: 042
     Dates: start: 2024

REACTIONS (2)
  - Traumatic haemorrhage [Recovering/Resolving]
  - Accident [Recovering/Resolving]

NARRATIVE: CASE EVENT DATE: 20251202
